FAERS Safety Report 10469304 (Version 1)
Quarter: 2014Q3

REPORT INFORMATION
  Report Type: Spontaneous
  Country: CA (occurrence: None)
  Receive Date: 20140919
  Receipt Date: 20140919
  Transmission Date: 20150326
  Serious: Yes (Hospitalization, Other)
  Sender: FDA-Public Use
  Company Number: 2014AP004651

PATIENT
  Age: 25 Year
  Sex: Female
  Weight: 58 kg

DRUGS (12)
  1. SENOKOT /00142201/ (SENNA ALEXANDRINA) [Concomitant]
  2. SAXAGLIPTIN (SAXAGLIPTIN) [Concomitant]
  3. HYDROMORPHONE (HYDROMORPHONE) [Concomitant]
     Active Substance: HYDROMORPHONE
  4. CYCLOBENZAPRINE (CYCLOBENZAPRINE) [Concomitant]
     Active Substance: CYCLOBENZAPRINE
  5. CIPRALEX /01588501/ (ESCITALOPRAM) [Concomitant]
  6. MAGNESIUM OXIDE (MAGNESIUM OXIDE) [Concomitant]
     Active Substance: MAGNESIUM OXIDE
  7. CEFTRIAXONE (CEFTRIAXONE) [Concomitant]
     Active Substance: CEFTRIAXONE
  8. DEFERIPRONE [Suspect]
     Active Substance: DEFERIPRONE
     Indication: THALASSAEMIA BETA
     Route: 048
     Dates: start: 20091211, end: 20140220
  9. PEG 3350 AND ELECTROLYTES (MACROGOL, POTASSIUM CHLORIDE, SODIUM BICARBONATE, SODIUM CHLORIDE SODIUM SULFATE ANHYDROUS) [Concomitant]
  10. HYDROMORPHONE (HYDROMORPHONE) [Concomitant]
     Active Substance: HYDROMORPHONE
  11. CEFAZOLIN (CEFAZOLIN) [Concomitant]
     Active Substance: CEFAZOLIN
  12. GRAVOL (DIMENHYDRINATE) [Concomitant]

REACTIONS (2)
  - Neutropenia [None]
  - Back pain [None]

NARRATIVE: CASE EVENT DATE: 20140327
